FAERS Safety Report 8766614 (Version 1)
Quarter: 2012Q4

REPORT INFORMATION
  Report Type: 
  Country: US (occurrence: US)
  Receive Date: 20120904
  Receipt Date: 20120904
  Transmission Date: 20130627
  Serious: No
  Sender: FDA-Public Use
  Company Number: US-JNJFOC-20120900415

PATIENT

DRUGS (1)
  1. INVEGA [Suspect]
     Indication: PRODUCT USED FOR UNKNOWN INDICATION
     Dosage: 3 mg and 6 mg
     Route: 048

REACTIONS (2)
  - Wrong technique in drug usage process [Unknown]
  - Drug dispensing error [Unknown]
